FAERS Safety Report 7307523-6 (Version None)
Quarter: 2011Q1

REPORT INFORMATION
  Report Type: 
  Country: None (occurrence: None)
  Receive Date: 20110223
  Receipt Date: 20110218
  Transmission Date: 20110831
  Serious: Yes (Other)
  Sender: FDA-Public Use
  Company Number: US-ASTRAZENECA-2007UW10932

PATIENT
  Age: 14109 Day
  Sex: Female
  Weight: 121.3 kg

DRUGS (26)
  1. SEROQUEL [Suspect]
     Indication: DEPRESSION
     Dosage: 15-100 MG
     Route: 048
     Dates: start: 20011120, end: 20070809
  2. SEROQUEL [Suspect]
     Route: 048
     Dates: start: 20040112, end: 20061025
  3. CRESTOR [Concomitant]
     Dates: start: 20091006
  4. SEROQUEL [Suspect]
     Route: 048
     Dates: start: 20040112, end: 20061025
  5. LEXAPRO [Concomitant]
     Dates: start: 20091006
  6. SEROQUEL [Suspect]
     Route: 048
     Dates: start: 20040112, end: 20061025
  7. ATIVAN [Concomitant]
     Indication: ANXIETY
     Dosage: 0.5-1.0 MG
     Route: 048
     Dates: start: 20011120
  8. TRAZODONE HCL [Concomitant]
     Indication: INSOMNIA
     Dosage: 50-200 MG
     Route: 048
     Dates: start: 20011120, end: 20070809
  9. ULTRAM [Concomitant]
     Dates: start: 20091006
  10. SEROQUEL [Suspect]
     Indication: SLEEP DISORDER
     Dosage: 15-100 MG
     Route: 048
     Dates: start: 20011120, end: 20070809
  11. RISPERDAL [Concomitant]
     Indication: DEPRESSION
     Dosage: 0.25 MG BID TO 1 MG BID
     Route: 048
     Dates: start: 20020808, end: 20070630
  12. ATIVAN [Concomitant]
  13. TRAZODONE HCL [Concomitant]
     Dosage: TWO 50 MG TABLETS PER DAY
     Dates: start: 20070101
  14. HALDOL [Concomitant]
     Indication: AGITATION
     Route: 048
     Dates: start: 20011120
  15. LEXAPRO [Concomitant]
     Dates: start: 20010101
  16. ATIVAN [Concomitant]
  17. CYMBALTA [Concomitant]
     Dosage: TWO 60 MG TABLETS PER DAY
     Dates: start: 20080514
  18. SEROQUEL [Suspect]
     Route: 048
     Dates: start: 20040112, end: 20061025
  19. SERZONE [Concomitant]
     Route: 048
     Dates: start: 20000425
  20. SEROQUEL [Suspect]
     Indication: PSYCHOTIC DISORDER
     Dosage: 15-100 MG
     Route: 048
     Dates: start: 20011120, end: 20070809
  21. GABITRIL [Concomitant]
     Dates: start: 20040101
  22. ATIVAN [Concomitant]
     Indication: AGITATION
     Dosage: 0.5-1.0 MG
     Route: 048
     Dates: start: 20011120
  23. SEROQUEL [Suspect]
     Indication: ANXIETY
     Dosage: 15-100 MG
     Route: 048
     Dates: start: 20011120, end: 20070809
  24. PROZAC [Concomitant]
     Dosage: TWO 20 MG TABLETS DAILY
  25. KLONOPIN [Concomitant]
     Dates: start: 20090122
  26. VISTARIL [Concomitant]
     Indication: AGITATION
     Dosage: 25-150 MG
     Route: 048
     Dates: start: 20040106

REACTIONS (24)
  - INTERVERTEBRAL DISC PROTRUSION [None]
  - WEIGHT INCREASED [None]
  - RETINAL VEIN OCCLUSION [None]
  - OPEN ANGLE GLAUCOMA [None]
  - TYPE 2 DIABETES MELLITUS [None]
  - MACULAR DEGENERATION [None]
  - KERATITIS [None]
  - CATARACT NUCLEAR [None]
  - ULCERATIVE KERATITIS [None]
  - VITREOUS DEGENERATION [None]
  - EPISCLERITIS [None]
  - NEUROPATHY PERIPHERAL [None]
  - DIABETIC RETINOPATHY [None]
  - BLINDNESS TRANSIENT [None]
  - CONJUNCTIVAL CYST [None]
  - CONJUNCTIVITIS [None]
  - IRIDOCYCLITIS [None]
  - SPINAL DISORDER [None]
  - TYPE 1 DIABETES MELLITUS [None]
  - CATARACT SUBCAPSULAR [None]
  - ANGLE CLOSURE GLAUCOMA [None]
  - DIABETIC KETOACIDOSIS [None]
  - BLEPHARITIS [None]
  - BORDERLINE GLAUCOMA [None]
